FAERS Safety Report 8500322-9 (Version None)
Quarter: 2012Q3

REPORT INFORMATION
  Report Type: 
  Country: None (occurrence: None)
  Receive Date: 20120710
  Receipt Date: 20120702
  Transmission Date: 20120928
  Serious: Yes (Life-Threatening, Hospitalization, Congenital Anomaly, Other)
  Sender: FDA-Public Use
  Company Number: US-PFIZER INC-2012014348

PATIENT
  Sex: Male

DRUGS (3)
  1. ZOLOFT [Suspect]
     Dosage: 100MG HALF DOSE (1/2) DAILY
     Route: 064
     Dates: start: 20001212
  2. ZOLOFT [Suspect]
     Dosage: HALF DOSE OF 100 MG AND THEN INCREASED TO ONE AND HALF DOSE DAILY
     Route: 064
     Dates: start: 20020306
  3. ZOLOFT [Suspect]
     Dosage: ONE AND HALF DOSE DAILY
     Route: 064
     Dates: start: 20010102

REACTIONS (10)
  - PULMONARY ARTERY ATRESIA [None]
  - NEONATAL RESPIRATORY DISTRESS SYNDROME [None]
  - ATRIAL SEPTAL DEFECT [None]
  - VENTRICULAR SEPTAL DEFECT [None]
  - PULMONARY VALVE STENOSIS [None]
  - HEART DISEASE CONGENITAL [None]
  - FALLOT'S TETRALOGY [None]
  - MATERNAL EXPOSURE TIMING UNSPECIFIED [None]
  - RIGHT VENTRICLE OUTFLOW TRACT OBSTRUCTION [None]
  - CONGENITAL ANOMALY [None]
